FAERS Safety Report 7719210-0 (Version None)
Quarter: 2011Q3

REPORT INFORMATION
  Report Type: 
  Country: None (occurrence: None)
  Receive Date: 20110830
  Receipt Date: 20110822
  Transmission Date: 20111222
  Serious: Yes (Other)
  Sender: FDA-Public Use
  Company Number: NO-BAYER-2011-075906

PATIENT
  Age: 42 Year
  Sex: Female

DRUGS (2)
  1. MIRENA [Suspect]
     Indication: CONTRACEPTION
     Dosage: UNK
     Route: 015
     Dates: start: 20060630, end: 20110725
  2. MIRENA [Suspect]
     Dosage: UNK
     Route: 015
     Dates: start: 20110725, end: 20110725

REACTIONS (5)
  - ANAL HAEMORRHAGE [None]
  - DYSMENORRHOEA [None]
  - DEVICE DIFFICULT TO USE [None]
  - CERVICAL CYST [None]
  - UTERINE CERVIX STENOSIS [None]
